FAERS Safety Report 6722613-4 (Version None)
Quarter: 2010Q2

REPORT INFORMATION
  Report Type: 
  Country: None (occurrence: None)
  Receive Date: 20100512
  Receipt Date: 20100430
  Transmission Date: 20101027
  Serious: Yes (Hospitalization)
  Sender: FDA-Public Use
  Company Number: DE-ELI_LILLY_AND_COMPANY-DE201005000427

PATIENT
  Sex: Female
  Weight: 65 kg

DRUGS (3)
  1. SOMATROPIN [Suspect]
     Dosage: 0.4 MG, UNKNOWN
     Route: 065
     Dates: start: 20010101, end: 20030313
  2. OESTROGEN [Concomitant]
     Indication: BLOOD GONADOTROPHIN DECREASED
     Dosage: UNK, UNKNOWN
     Dates: start: 20000101
  3. LEVOTHYROXINE SODIUM [Concomitant]
     Indication: BLOOD THYROID STIMULATING HORMONE DECREASED
     Dosage: UNK, UNKNOWN
     Dates: start: 20000101

REACTIONS (1)
  - PITUITARY TUMOUR RECURRENT [None]
